FAERS Safety Report 11702552 (Version 1)
Quarter: 2015Q4

REPORT INFORMATION
  Report Type: Spontaneous
  Country: US (occurrence: US)
  Receive Date: 20151105
  Receipt Date: 20151105
  Transmission Date: 20160304
  Serious: No
  Sender: FDA-Public Use
  Company Number: US-ACTELION PHARMACEUTICALS US, INC.-A-US2014-96607

PATIENT
  Age: 80 Year
  Sex: Female
  Weight: 56.7 kg

DRUGS (17)
  1. PROAIR HFA [Concomitant]
     Active Substance: ALBUTEROL SULFATE
  2. OMEPRAZOLE. [Concomitant]
     Active Substance: OMEPRAZOLE
  3. CENTRUM SILVER [Concomitant]
     Active Substance: MINERALS\VITAMINS
  4. LIPITOR [Concomitant]
     Active Substance: ATORVASTATIN CALCIUM
  5. LEVOTHYROXINE. [Concomitant]
     Active Substance: LEVOTHYROXINE
  6. FISH OIL [Concomitant]
     Active Substance: FISH OIL
  7. VALCHLOR [Suspect]
     Active Substance: MECHLORETHAMINE
     Indication: LANGERHANS^ CELL HISTIOCYTOSIS
     Dosage: 0.116% TOPICAL GEL, QD
     Route: 061
     Dates: start: 20140226
  8. TRIAMCINOLONE [Concomitant]
     Active Substance: TRIAMCINOLONE
  9. CLONAZEPAM. [Concomitant]
     Active Substance: CLONAZEPAM
  10. METAMUCIL [Concomitant]
     Active Substance: PLANTAGO SEED
  11. LOSARTIN [Concomitant]
     Active Substance: LOSARTAN
  12. BUDESONIDE. [Concomitant]
     Active Substance: BUDESONIDE
  13. CLOBETASOL [Concomitant]
     Active Substance: CLOBETASOL
  14. ASPIRIN. [Concomitant]
     Active Substance: ASPIRIN
  15. MIRALAX [Concomitant]
     Active Substance: POLYETHYLENE GLYCOL 3350
  16. ZOLOFT [Concomitant]
     Active Substance: SERTRALINE HYDROCHLORIDE
  17. CITRACAL + D [Concomitant]
     Active Substance: CALCIUM CITRATE\VITAMIN D

REACTIONS (8)
  - Dry skin [Unknown]
  - Pain [Not Recovered/Not Resolved]
  - Skin irritation [Not Recovered/Not Resolved]
  - Pruritus [Unknown]
  - Irritable bowel syndrome [Not Recovered/Not Resolved]
  - Skin discolouration [Unknown]
  - Skin disorder [Not Recovered/Not Resolved]
  - Diarrhoea [Not Recovered/Not Resolved]
